FAERS Safety Report 14278657 (Version 2)
Quarter: 2018Q4

REPORT INFORMATION
  Report Type: Report from Study
  Country: DE (occurrence: DE)
  Receive Date: 20171212
  Receipt Date: 20181011
  Transmission Date: 20190204
  Serious: Yes (Death, Hospitalization)
  Sender: FDA-Public Use
  Company Number: DE-INCYTE CORPORATION-2017IN010647

PATIENT

DRUGS (23)
  1. INCB018424 [Suspect]
     Active Substance: RUXOLITINIB
     Dosage: 20 MG, QD
     Route: 048
     Dates: start: 20150420, end: 20170530
  2. TORASEMIDE [Concomitant]
     Active Substance: TORSEMIDE
     Dosage: 10 MG, UNK
     Route: 065
     Dates: start: 20170214, end: 20170831
  3. TORASEMIDE [Concomitant]
     Active Substance: TORSEMIDE
     Dosage: 20 MG, UNK
     Route: 065
     Dates: start: 20170831, end: 20171018
  4. TAMSULOSIN [Concomitant]
     Active Substance: TAMSULOSIN
     Dosage: 0.4 MG, UNK
     Route: 065
     Dates: start: 20170813
  5. PROCORALAN [Concomitant]
     Active Substance: IVABRADINE
     Indication: CARDIAC FAILURE
  6. INCB018424 [Suspect]
     Active Substance: RUXOLITINIB
     Dosage: 40 MG, QD
     Route: 048
     Dates: start: 20171020, end: 20171116
  7. PROCORALAN [Concomitant]
     Active Substance: IVABRADINE
     Indication: PULMONARY HYPERTENSION
     Dosage: UNK
     Route: 065
     Dates: start: 201503
  8. EPOETIN [Concomitant]
     Active Substance: ERYTHROPOIETIN
     Indication: ANAEMIA
     Dosage: UNK
     Route: 065
     Dates: start: 20151028
  9. TORASEMIDE [Concomitant]
     Active Substance: TORSEMIDE
     Indication: CARDIAC FAILURE
     Dosage: 10 MG, UNK
     Route: 065
     Dates: start: 20150302, end: 20150714
  10. METOPROLOL. [Concomitant]
     Active Substance: METOPROLOL
     Indication: CARDIAC FAILURE
     Dosage: 95 MG, UNK
     Route: 065
     Dates: start: 20150302
  11. TAMSULOSIN [Concomitant]
     Active Substance: TAMSULOSIN
     Indication: PROSTATE CANCER
     Dosage: 0.8 MG, UNK
     Route: 065
     Dates: start: 20150302, end: 20170813
  12. AMLODIPINE [Concomitant]
     Active Substance: AMLODIPINE BESYLATE
     Indication: CARDIAC FAILURE
     Dosage: 10 MG, UNK
     Route: 065
     Dates: start: 20150302
  13. VIGANTOLETTEN [Concomitant]
     Active Substance: CHOLECALCIFEROL
     Indication: OSTEOPOROSIS PROPHYLAXIS
     Dosage: 1000 IU, UNK
     Route: 065
     Dates: start: 20150306
  14. ASPIRIN. [Concomitant]
     Active Substance: ASPIRIN
     Indication: EMBOLISM
     Dosage: 100 MG, UNK
     Route: 065
     Dates: start: 20150420, end: 20170831
  15. SIMVASTATIN. [Concomitant]
     Active Substance: SIMVASTATIN
     Indication: BLOOD CHOLESTEROL INCREASED
     Dosage: 20 MG, UNK
     Route: 065
     Dates: start: 20150302, end: 20150420
  16. PHENPROCOUMON [Concomitant]
     Active Substance: PHENPROCOUMON
     Indication: EMBOLISM
     Dosage: PRN (ACCORDING TO INR)
     Route: 065
     Dates: start: 20150302, end: 20150420
  17. MYLERAN [Concomitant]
     Active Substance: BUSULFAN
     Indication: CHEMOTHERAPY
     Dosage: 2 MG, 3 DAYS PER WEEK
     Route: 065
     Dates: start: 20170519, end: 20170919
  18. MYLERAN [Concomitant]
     Active Substance: BUSULFAN
     Dosage: 2 MG, 4 DAYS PER WEEK
     Route: 065
     Dates: start: 20170919
  19. INCB018424 [Suspect]
     Active Substance: RUXOLITINIB
     Indication: PRIMARY MYELOFIBROSIS
     Dosage: 10 MG, QD
     Route: 048
     Dates: start: 20150306
  20. TORASEMIDE [Concomitant]
     Active Substance: TORSEMIDE
     Dosage: 12 MG, UNK
     Route: 065
     Dates: start: 20150714, end: 20170214
  21. TORASEMIDE [Concomitant]
     Active Substance: TORSEMIDE
     Dosage: 30 MG, UNK
     Route: 065
     Dates: start: 20171018
  22. PHENPROCOUMON [Concomitant]
     Active Substance: PHENPROCOUMON
     Dosage: PRN (ACCORDING TO INR)
     Route: 065
     Dates: start: 20170831
  23. VALSARTAN. [Concomitant]
     Active Substance: VALSARTAN
     Indication: BLOOD PRESSURE INCREASED
     Dosage: 80 MG, UNK
     Route: 065
     Dates: start: 20150714

REACTIONS (4)
  - Lyme disease [Recovered/Resolved]
  - Pleural effusion [Fatal]
  - Cardiac failure [Fatal]
  - Oedema peripheral [Fatal]

NARRATIVE: CASE EVENT DATE: 20170927
